FAERS Safety Report 21677722 (Version 2)
Quarter: 2022Q4

REPORT INFORMATION
  Report Type: Report from Study
  Country: TR (occurrence: TR)
  Receive Date: 20221203
  Receipt Date: 20221213
  Transmission Date: 20230112
  Serious: Yes (Hospitalization)
  Sender: FDA-Public Use
  Company Number: TR-ABBVIE-4221437

PATIENT
  Age: 51 Year
  Sex: Female

DRUGS (2)
  1. CARBIDOPA\LEVODOPA [Suspect]
     Active Substance: CARBIDOPA\LEVODOPA
     Indication: Parkinson^s disease
     Dosage: MORNING DOSE (ML): 3.00 CONTINUOUS DOSE (ML): 6.00 EXTRA DOSE (ML): 1.50
     Route: 050
     Dates: start: 20221207
  2. CARBIDOPA\LEVODOPA [Suspect]
     Active Substance: CARBIDOPA\LEVODOPA
     Dosage: MORNING DOSE (ML): 11.00 CONTINUOUS DOSE (ML): 6.00 EXTRA DOSE (ML): 1.50
     Route: 050
     Dates: start: 20221012, end: 20221205

REACTIONS (4)
  - Device dislocation [Recovered/Resolved]
  - Wound [Not Recovered/Not Resolved]
  - Parkinson^s disease [Not Recovered/Not Resolved]
  - Stoma site discharge [Not Recovered/Not Resolved]

NARRATIVE: CASE EVENT DATE: 20221120
